FAERS Safety Report 9757926 (Version 1)
Quarter: 2013Q4

REPORT INFORMATION
  Report Type: Report from Study
  Country: JP (occurrence: JP)
  Receive Date: 20131216
  Receipt Date: 20131216
  Transmission Date: 20140711
  Serious: No
  Sender: FDA-Public Use
  Company Number: JP-JNJFOC-20131202861

PATIENT
  Age: 36 Year
  Sex: Male
  Weight: 78 kg

DRUGS (36)
  1. STELARA [Suspect]
     Indication: PSORIASIS
     Route: 058
     Dates: start: 20110511, end: 20110511
  2. STELARA [Suspect]
     Indication: PSORIASIS
     Route: 058
     Dates: start: 20110608, end: 20110608
  3. STELARA [Suspect]
     Indication: PSORIASIS
     Route: 058
     Dates: start: 20110831, end: 20110831
  4. STELARA [Suspect]
     Indication: PSORIASIS
     Route: 058
     Dates: start: 20111116, end: 20111116
  5. STELARA [Suspect]
     Indication: PSORIASIS
     Route: 058
     Dates: start: 20120208, end: 20120208
  6. STELARA [Suspect]
     Indication: PSORIASIS
     Route: 058
     Dates: start: 20120418, end: 20120418
  7. STELARA [Suspect]
     Indication: PSORIASIS
     Route: 058
     Dates: start: 20120711, end: 20120711
  8. STELARA [Suspect]
     Indication: PSORIASIS
     Route: 058
     Dates: start: 20121010, end: 20121010
  9. STELARA [Suspect]
     Indication: PSORIASIS
     Route: 058
     Dates: start: 20121226, end: 20121226
  10. STELARA [Suspect]
     Indication: PSORIASIS
     Route: 058
     Dates: start: 20130313
  11. STELARA [Suspect]
     Indication: PSORIASIS
     Route: 058
     Dates: start: 20120418, end: 20120418
  12. STELARA [Suspect]
     Indication: PSORIASIS
     Route: 058
     Dates: start: 20110608, end: 20110608
  13. STELARA [Suspect]
     Indication: PSORIASIS
     Route: 058
     Dates: start: 20110831, end: 20110831
  14. STELARA [Suspect]
     Indication: PSORIASIS
     Route: 058
     Dates: start: 20111116, end: 20111116
  15. STELARA [Suspect]
     Indication: PSORIASIS
     Route: 058
     Dates: start: 20120208, end: 20120208
  16. STELARA [Suspect]
     Indication: PSORIASIS
     Route: 058
     Dates: start: 20110511, end: 20110511
  17. STELARA [Suspect]
     Indication: PSORIASIS
     Route: 058
     Dates: start: 20120711, end: 20120711
  18. STELARA [Suspect]
     Indication: PSORIASIS
     Route: 058
     Dates: start: 20121010, end: 20121010
  19. STELARA [Suspect]
     Indication: PSORIASIS
     Route: 058
     Dates: start: 20121226, end: 20121226
  20. STELARA [Suspect]
     Indication: PSORIASIS
     Route: 058
     Dates: start: 20130313
  21. NIZORAL [Concomitant]
     Indication: PSORIASIS
     Route: 061
     Dates: start: 20120208, end: 20120418
  22. NEORAL [Concomitant]
     Indication: PSORIASIS
     Route: 048
     Dates: end: 20110525
  23. BONALFA [Concomitant]
     Indication: PSORIASIS
     Route: 061
     Dates: start: 20110803, end: 20120104
  24. ANTEBATE [Concomitant]
     Indication: PSORIASIS
     Route: 061
     Dates: start: 20111019
  25. GLYMESASON [Concomitant]
     Indication: PSORIASIS
     Route: 061
     Dates: start: 20110824, end: 20111116
  26. SATOSALBE [Concomitant]
     Indication: PSORIASIS
     Route: 061
     Dates: start: 20110824, end: 20111116
  27. ALLELOCK [Concomitant]
     Indication: PSORIASIS
     Route: 048
     Dates: start: 20110817, end: 20110831
  28. NEOMALLERMIN TR [Concomitant]
     Indication: PSORIASIS
     Route: 048
     Dates: start: 201108, end: 20110823
  29. MINOMYCIN [Concomitant]
     Indication: FOLLICULITIS
     Route: 048
     Dates: start: 20110817, end: 20110831
  30. RULID [Concomitant]
     Indication: FOLLICULITIS
     Route: 048
     Dates: start: 20110811, end: 20110816
  31. ACUATIM [Concomitant]
     Indication: FOLLICULITIS
     Route: 061
     Dates: start: 20110811, end: 20110816
  32. ALESION [Concomitant]
     Indication: PSORIASIS
     Route: 048
     Dates: start: 20110811, end: 20110816
  33. ATARAX-P [Concomitant]
     Indication: PSORIASIS
     Route: 048
     Dates: start: 20110824, end: 20110831
  34. OXAROL [Concomitant]
     Indication: PSORIASIS
     Route: 061
     Dates: start: 20120104
  35. DERMOVATE [Concomitant]
     Indication: PSORIASIS
     Route: 061
     Dates: start: 20120104
  36. RINDERON-V [Concomitant]
     Indication: PSORIASIS
     Route: 061
     Dates: start: 20120418

REACTIONS (1)
  - Hepatic function abnormal [Recovering/Resolving]
